FAERS Safety Report 9259031 (Version 1)
Quarter: 2013Q2

REPORT INFORMATION
  Report Type: Report from Study
  Country: ES (occurrence: ES)
  Receive Date: 20130426
  Receipt Date: 20130426
  Transmission Date: 20140414
  Serious: Yes (Life-Threatening)
  Sender: FDA-Public Use
  Company Number: PHHY2013ES038031

PATIENT
  Age: 52 Year
  Sex: Female

DRUGS (4)
  1. FTY 720 [Suspect]
     Indication: RELAPSING-REMITTING MULTIPLE SCLEROSIS
     Dosage: 0.5 MG, QD
     Route: 048
     Dates: start: 20130412
  2. EUTIROX [Concomitant]
     Indication: HYPOTHYROIDISM
     Dosage: 75 UKN, UNK
  3. NATECAL D [Concomitant]
     Dosage: 1500 UKN, UNK
  4. TEGRETOL [Concomitant]
     Indication: DYSTONIA
     Dosage: 200 UKN, UNK

REACTIONS (5)
  - Cardiac arrest [Recovered/Resolved]
  - Atrioventricular block second degree [Recovered/Resolved]
  - Atrioventricular block first degree [Recovered/Resolved]
  - Sinus bradycardia [Unknown]
  - Chest pain [Recovered/Resolved]
